FAERS Safety Report 5846186-3 (Version None)
Quarter: 2008Q3

REPORT INFORMATION
  Report Type: 
  Country: None (occurrence: None)
  Receive Date: 20080813
  Receipt Date: 20080801
  Transmission Date: 20090109
  Serious: Yes (Other)
  Sender: FDA-Public Use
  Company Number: 2008AL005349

PATIENT
  Age: 89 Year
  Sex: Female

DRUGS (1)
  1. DIGOXIN [Suspect]
     Dosage: 0.125MG DAILY PO
     Route: 048

REACTIONS (5)
  - HEADACHE [None]
  - MALAISE [None]
  - THERAPEUTIC AGENT TOXICITY [None]
  - VOMITING [None]
  - WEIGHT DECREASED [None]
